FAERS Safety Report 6656112-5 (Version None)
Quarter: 2010Q1

REPORT INFORMATION
  Report Type: 
  Country: None (occurrence: None)
  Receive Date: 20100329
  Receipt Date: 20100324
  Transmission Date: 20100710
  Serious: Yes (Hospitalization, Disabling)
  Sender: FDA-Public Use
  Company Number: B0642602A

PATIENT
  Sex: Male

DRUGS (2)
  1. CLAMOXYL [Suspect]
     Indication: BACTERIAL INFECTION
     Route: 048
     Dates: start: 20091206, end: 20091208
  2. DIAMICRON [Suspect]
     Indication: DIABETES MELLITUS
     Route: 048
     Dates: start: 20091206, end: 20091216

REACTIONS (5)
  - ARTHRALGIA [None]
  - DERMATITIS EXFOLIATIVE [None]
  - HYPERAESTHESIA [None]
  - OEDEMA PERIPHERAL [None]
  - PURPURA [None]
